FAERS Safety Report 11410892 (Version 1)
Quarter: 2015Q3

REPORT INFORMATION
  Report Type: Other
  Country: GB (occurrence: GB)
  Receive Date: 20150824
  Receipt Date: 20150824
  Transmission Date: 20151125
  Serious: Yes (Disabling, Other)
  Sender: FDA-Public Use
  Company Number: GB-MYLANLABS-2015M1027249

PATIENT

DRUGS (2)
  1. DOPAMINE [Concomitant]
     Active Substance: DOPAMINE\DOPAMINE HYDROCHLORIDE
     Dosage: UNK
  2. GABAPENTIN. [Suspect]
     Active Substance: GABAPENTIN
     Indication: PAIN
     Dosage: UNK
     Route: 048
     Dates: start: 201506, end: 201507

REACTIONS (4)
  - Cognitive disorder [Recovered/Resolved]
  - Mobility decreased [Recovered/Resolved]
  - Muscular weakness [Recovered/Resolved]
  - Parkinson^s disease [Recovered/Resolved]

NARRATIVE: CASE EVENT DATE: 201506
